FAERS Safety Report 9916858 (Version 2)
Quarter: 2014Q1

REPORT INFORMATION
  Report Type: Spontaneous
  Country: US (occurrence: US)
  Receive Date: 20140221
  Receipt Date: 20140221
  Transmission Date: 20141002
  Serious: No
  Sender: FDA-Public Use
  Company Number: US-PFIZER INC-2014036454

PATIENT
  Age: 47 Year
  Sex: Female
  Weight: 104.31 kg

DRUGS (4)
  1. LYRICA [Suspect]
     Indication: FIBROMYALGIA
     Dosage: 300 MG, 1X/DAY
     Dates: start: 2012
  2. LYRICA [Suspect]
     Indication: MORTON^S NEURALGIA
     Dosage: 300 MG, 3X/DAY
  3. LYRICA [Suspect]
     Indication: TARSAL TUNNEL SYNDROME
  4. TENORMIN [Concomitant]
     Indication: BLOOD PRESSURE ABNORMAL
     Dosage: 50 MG, DAILY

REACTIONS (3)
  - Off label use [Unknown]
  - Feeling abnormal [Unknown]
  - Pain [Unknown]
